FAERS Safety Report 5897814-8 (Version None)
Quarter: 2008Q3

REPORT INFORMATION
  Report Type: 
  Country: None (occurrence: None)
  Receive Date: 20080923
  Receipt Date: 20080918
  Transmission Date: 20090109
  Serious: Yes (Life-Threatening)
  Sender: FDA-Public Use
  Company Number: 2008JP003959

PATIENT
  Age: 66 Year
  Sex: Female
  Weight: 27.2158 kg

DRUGS (10)
  1. PROGRAF [Suspect]
     Indication: RHEUMATOID ARTHRITIS
     Dosage: 2 MG, UID/QD, ORAL
     Route: 047
     Dates: start: 20060126, end: 20080807
  2. BREDININ             (MIZORIBINE) TABLET [Suspect]
     Indication: RHEUMATOID ARTHRITIS
     Dosage: 200 MG, UID/QD, ORAL
     Route: 048
     Dates: start: 20050224, end: 20080807
  3. LIVALO           (ITAVASTATIN CALCIUM) TABLET [Suspect]
     Indication: HYPERLIPIDAEMIA
     Dosage: 2 MG, UID/QD, ORAL
     Route: 048
     Dates: start: 20050127, end: 20080807
  4. SHAKUYAKUKANZOUTOU           (HERBAL EXTRACT NOS) GRANULE [Suspect]
     Dosage: 1 DF, UID/QD, ORAL
     Route: 048
     Dates: start: 20080719, end: 20080719
  5. PREDNISOLONE TAB [Concomitant]
  6. DEPAS         (ETIZOLAM) TABLET [Concomitant]
  7. LENDORMIN          (BROTIZOLAM) TABLET [Concomitant]
  8. ALLEGRA [Concomitant]
  9. EVISTA         (RALOXIFENE) TABLET [Concomitant]
  10. MICARDIS [Concomitant]

REACTIONS (5)
  - ANOREXIA [None]
  - HEPATITIS ACUTE [None]
  - MALAISE [None]
  - PROTHROMBIN TIME RATIO DECREASED [None]
  - PYREXIA [None]
